FAERS Safety Report 25712098 (Version 2)
Quarter: 2025Q3

REPORT INFORMATION
  Report Type: Spontaneous
  Country: ID (occurrence: ID)
  Receive Date: 20250821
  Receipt Date: 20250902
  Transmission Date: 20251020
  Serious: Yes (Other)
  Sender: INCYTE
  Company Number: ID-002147023-NVSC2025ID130411

PATIENT
  Age: 81 Year

DRUGS (2)
  1. RUXOLITINIB [Suspect]
     Active Substance: RUXOLITINIB
     Indication: Myelofibrosis
     Dosage: 5 MG, QD
     Route: 065
  2. RUXOLITINIB [Suspect]
     Active Substance: RUXOLITINIB
     Dosage: 5 MG, BID
     Route: 065

REACTIONS (8)
  - Anaemia [Unknown]
  - Atrial fibrillation [Unknown]
  - Dry gangrene [Unknown]
  - Vasculitis [Unknown]
  - Atrioventricular block [Unknown]
  - Onycholysis [Unknown]
  - Hyponatraemia [Unknown]
  - Thrombocytopenia [Unknown]
